FAERS Safety Report 24756141 (Version 3)
Quarter: 2025Q1

REPORT INFORMATION
  Report Type: Spontaneous
  Country: US (occurrence: US)
  Receive Date: 20241219
  Receipt Date: 20250317
  Transmission Date: 20250409
  Serious: Yes (Other)
  Sender: SANOFI AVENTIS
  Company Number: US-SA-2024SA373198

PATIENT
  Age: 59 Year
  Sex: Male

DRUGS (1)
  1. DUPIXENT [Suspect]
     Active Substance: DUPILUMAB
     Indication: Dermatitis atopic
     Dosage: 300 MG, QOW
     Route: 058
     Dates: start: 2024

REACTIONS (7)
  - Loss of consciousness [Unknown]
  - Photophobia [Unknown]
  - Dry skin [Recovering/Resolving]
  - Pyrexia [Unknown]
  - Injection site pain [Unknown]
  - Respiratory syncytial virus infection [Unknown]
  - Cough [Unknown]

NARRATIVE: CASE EVENT DATE: 20240101
